FAERS Safety Report 9883774 (Version 2)
Quarter: 2014Q3

REPORT INFORMATION
  Report Type: Spontaneous
  Country: US (occurrence: US)
  Receive Date: 20140210
  Receipt Date: 20140703
  Transmission Date: 20150326
  Serious: Yes (Hospitalization, Other)
  Sender: FDA-Public Use
  Company Number: US-009507513-1402USA003555

PATIENT
  Sex: Female

DRUGS (1)
  1. NUVARING [Suspect]
     Active Substance: ETHINYL ESTRADIOL\ETONOGESTREL
     Indication: CONTRACEPTION
     Dosage: UNK
     Route: 067
     Dates: start: 20100520, end: 20130810

REACTIONS (5)
  - Headache [Unknown]
  - Tongue injury [Unknown]
  - Superior sagittal sinus thrombosis [Unknown]
  - Dehydration [Unknown]
  - Convulsion [Unknown]

NARRATIVE: CASE EVENT DATE: 20130728
